FAERS Safety Report 9462261 (Version 1)
Quarter: 2013Q3

REPORT INFORMATION
  Report Type: Spontaneous
  Country: US (occurrence: US)
  Receive Date: 20130816
  Receipt Date: 20130816
  Transmission Date: 20140515
  Serious: Yes (Other)
  Sender: FDA-Public Use
  Company Number: US-ABBOTT-13P-163-1127317-00

PATIENT
  Sex: Female
  Weight: 77.18 kg

DRUGS (14)
  1. DEPAKOTE [Suspect]
     Indication: EPILEPSY
     Dates: start: 1983, end: 1990
  2. DEPAKOTE [Suspect]
     Dates: start: 1990, end: 201202
  3. DEPAKOTE ER [Suspect]
     Indication: EPILEPSY
     Dates: start: 201202
  4. DEPAKENE [Suspect]
     Indication: EPILEPSY
     Dates: start: 1981, end: 1983
  5. HUMIRA [Suspect]
     Indication: RHEUMATOID ARTHRITIS
     Dosage: 2 DOSES ONLY
     Dates: start: 201306, end: 201307
  6. ERYTHROMYCIN [Suspect]
     Indication: PNEUMONIA
     Dates: start: 2003
  7. LEVAQUIN [Suspect]
     Indication: PNEUMONIA
  8. KEFLEX [Suspect]
     Indication: PNEUMONIA
     Dates: start: 1993
  9. ARAVA [Suspect]
     Indication: RHEUMATOID ARTHRITIS
     Dates: start: 201304, end: 201304
  10. METHOTREXATE [Suspect]
     Indication: RHEUMATOID ARTHRITIS
  11. MACROLIDES [Suspect]
     Indication: PRODUCT USED FOR UNKNOWN INDICATION
  12. SULFA [Suspect]
     Indication: PRODUCT USED FOR UNKNOWN INDICATION
  13. DAYPRO [Concomitant]
     Indication: BACK PAIN
  14. TYLENOL W/CODEINE NO. 3 [Concomitant]
     Indication: PAIN

REACTIONS (37)
  - Synovial cyst [Recovered/Resolved]
  - Anaphylactic reaction [Recovered/Resolved]
  - Pyrexia [Recovered/Resolved]
  - Throat tightness [Recovered/Resolved]
  - Sciatica [Recovered/Resolved]
  - Dehydration [Recovered/Resolved]
  - Benign neoplasm of thyroid gland [Recovered/Resolved]
  - Hypersensitivity [Unknown]
  - Rheumatoid arthritis [Not Recovered/Not Resolved]
  - Drug ineffective [Unknown]
  - Neurological symptom [Unknown]
  - Nausea [Recovered/Resolved]
  - Vomiting [Recovered/Resolved]
  - Diarrhoea [Recovered/Resolved]
  - Asthenia [Recovered/Resolved]
  - Tremor [Recovered/Resolved]
  - Emotional disorder [Recovered/Resolved]
  - Asthenia [Recovered/Resolved]
  - Fatigue [Recovered/Resolved]
  - Hallucination [Recovered/Resolved]
  - Haemoptysis [Recovered/Resolved]
  - Hypophagia [Recovered/Resolved]
  - Haematochezia [Recovered/Resolved]
  - Dyspnoea [Recovered/Resolved]
  - Liver function test abnormal [Recovered/Resolved]
  - Renal function test abnormal [Recovered/Resolved]
  - Gait disturbance [Recovered/Resolved]
  - Oedema peripheral [Recovered/Resolved]
  - Visual impairment [Not Recovered/Not Resolved]
  - Mobility decreased [Not Recovered/Not Resolved]
  - Back pain [Not Recovered/Not Resolved]
  - Pain [Not Recovered/Not Resolved]
  - Neck pain [Not Recovered/Not Resolved]
  - Pain in extremity [Not Recovered/Not Resolved]
  - Laryngitis [Recovered/Resolved]
  - Hypersensitivity [Recovered/Resolved]
  - Pneumonia [Unknown]
